FAERS Safety Report 13130126 (Version 2)
Quarter: 2017Q1

REPORT INFORMATION
  Report Type: Spontaneous
  Country: SG (occurrence: SG)
  Receive Date: 20170119
  Receipt Date: 20170303
  Transmission Date: 20170428
  Serious: Yes (Other)
  Sender: FDA-Public Use
  Company Number: SG-ACTELION-A-CH2017-148309

PATIENT
  Age: 74 Year
  Sex: Female
  Weight: 39.4 kg

DRUGS (4)
  1. SILDENAFIL. [Interacting]
     Active Substance: SILDENAFIL
     Indication: PULMONARY ARTERIAL HYPERTENSION
     Dosage: 100 MG, TID
     Route: 048
     Dates: start: 20161112
  2. OPSUMIT [Suspect]
     Active Substance: MACITENTAN
     Indication: PULMONARY ARTERIAL HYPERTENSION
     Dosage: 10 MG, OD
     Route: 048
     Dates: start: 20160311
  3. SILDENAFIL. [Interacting]
     Active Substance: SILDENAFIL
     Dosage: 75 MG, TID
     Route: 048
  4. SILDENAFIL. [Interacting]
     Active Substance: SILDENAFIL
     Dosage: 50 MG, TID
     Route: 048
     Dates: start: 20161112

REACTIONS (9)
  - Papilloedema [Unknown]
  - Pulmonary arterial hypertension [Unknown]
  - Cataract [Unknown]
  - Salivary gland mass [Unknown]
  - Concomitant disease aggravated [Unknown]
  - Intracranial pressure increased [Unknown]
  - Vision blurred [Unknown]
  - Headache [Unknown]
  - Drug interaction [Unknown]

NARRATIVE: CASE EVENT DATE: 20170111
